FAERS Safety Report 20368276 (Version 1)
Quarter: 2022Q1

REPORT INFORMATION
  Report Type: Spontaneous
  Country: US (occurrence: US)
  Receive Date: 20220124
  Receipt Date: 20220124
  Transmission Date: 20220423
  Serious: No
  Sender: FDA-Public Use
  Company Number: US-CELGENE-USA-20220104624

PATIENT
  Sex: Female
  Weight: 74.910 kg

DRUGS (7)
  1. INREBIC [Suspect]
     Active Substance: FEDRATINIB HYDROCHLORIDE
     Indication: Polycythaemia vera
     Dosage: 100 MILLIGRAM
     Route: 048
  2. INREBIC [Suspect]
     Active Substance: FEDRATINIB HYDROCHLORIDE
     Dosage: 400 MILLIGRAM
     Route: 048
  3. CALCIUM\CHOLECALCIFEROL [Concomitant]
     Active Substance: CALCIUM\CHOLECALCIFEROL
     Indication: Product used for unknown indication
     Dosage: 60
     Route: 065
  4. WARFARIN SODIUM [Concomitant]
     Active Substance: WARFARIN SODIUM
     Indication: Product used for unknown indication
     Route: 065
  5. CORTEF [Concomitant]
     Active Substance: HYDROCORTISONE
     Indication: Product used for unknown indication
     Route: 048
  6. Etacrynic [Concomitant]
     Indication: Product used for unknown indication
     Route: 065
  7. ADEMPAS [Concomitant]
     Active Substance: RIOCIGUAT
     Indication: Product used for unknown indication
     Route: 065

REACTIONS (3)
  - Platelet count decreased [Unknown]
  - Nausea [Unknown]
  - Vomiting [Unknown]
